FAERS Safety Report 16298502 (Version 2)
Quarter: 2019Q2

REPORT INFORMATION
  Report Type: Spontaneous
  Country: EC (occurrence: EC)
  Receive Date: 20190510
  Receipt Date: 20190520
  Transmission Date: 20190711
  Serious: Yes (Hospitalization, Other)
  Sender: FDA-Public Use
  Company Number: EC-BAYER-2019-089697

PATIENT
  Age: 27 Year
  Sex: Male

DRUGS (3)
  1. DEXAMETHASONE. [Suspect]
     Active Substance: DEXAMETHASONE
     Indication: NEUROCYSTICERCOSIS
     Dosage: UNK
  2. PRAZIQUANTEL. [Suspect]
     Active Substance: PRAZIQUANTEL
     Indication: NEUROCYSTICERCOSIS
     Dosage: 3 G, QD
  3. ALBENDAZOLE. [Suspect]
     Active Substance: ALBENDAZOLE
     Indication: NEUROCYSTICERCOSIS
     Dosage: 800 MG, UNK

REACTIONS (3)
  - Off label use [None]
  - Drug-induced liver injury [Recovered/Resolved]
  - Product use in unapproved indication [None]
